FAERS Safety Report 6419007-8 (Version None)
Quarter: 2009Q4

REPORT INFORMATION
  Report Type: 
  Country: None (occurrence: None)
  Receive Date: 20091026
  Receipt Date: 20091015
  Transmission Date: 20100525
  Serious: No
  Sender: FDA-Public Use
  Company Number: 2009011534

PATIENT
  Age: 44 Year
  Sex: Female

DRUGS (3)
  1. FENTORA [Suspect]
     Indication: CANCER PAIN
     Dosage: 9600 MCG  (800 MCG,  1 IN 2 HR),BU; 230400 MCG  (800 MCG, 1 IN 5 MIN),BU
     Route: 002
     Dates: start: 20080101, end: 20090101
  2. FENTORA [Suspect]
     Indication: CANCER PAIN
     Dosage: 9600 MCG  (800 MCG,  1 IN 2 HR),BU; 230400 MCG  (800 MCG, 1 IN 5 MIN),BU
     Route: 002
     Dates: start: 20090101
  3. HYDROMORPHONE (HYDROMORPHONE) [Concomitant]

REACTIONS (1)
  - DRUG PRESCRIBING ERROR [None]
